FAERS Safety Report 10233553 (Version 1)
Quarter: 2014Q2

REPORT INFORMATION
  Report Type: Spontaneous
  Country: BR (occurrence: BR)
  Receive Date: 20140612
  Receipt Date: 20140612
  Transmission Date: 20141212
  Serious: Yes (Other)
  Sender: FDA-Public Use
  Company Number: BR-JNJFOC-20140604853

PATIENT
  Sex: Female
  Weight: 67 kg

DRUGS (1)
  1. REMICADE [Suspect]
     Indication: ANKYLOSING SPONDYLITIS
     Route: 042
     Dates: start: 2004, end: 2013

REACTIONS (5)
  - Uveitis [Unknown]
  - Ear infection [Unknown]
  - Skin infection [Unknown]
  - Onychomadesis [Unknown]
  - Drug ineffective [Unknown]
